FAERS Safety Report 17924131 (Version 1)
Quarter: 2020Q2

REPORT INFORMATION
  Report Type: Spontaneous
  Country: DE (occurrence: DE)
  Receive Date: 20200622
  Receipt Date: 20200622
  Transmission Date: 20200714
  Serious: Yes (Hospitalization)
  Sender: FDA-Public Use
  Company Number: DE-TEVA-2020-DE-1789121

PATIENT
  Age: 89 Year
  Sex: Female

DRUGS (10)
  1. METAMIZOL [Concomitant]
     Active Substance: METAMIZOLE SODIUM
     Dosage: 2000 MILLIGRAM DAILY; 500 MG, 1-1-1-1
     Route: 048
  2. ONDANSETRON ABZ 8MG [Concomitant]
     Active Substance: ONDANSETRON
     Dosage: 8 MG, IF NECESSARY
     Route: 060
  3. LETROZOL [Suspect]
     Active Substance: LETROZOLE
     Dosage: 2.5 MILLIGRAM DAILY;  1-0-0-0
     Route: 048
  4. ZOLEDRONSAURE [Suspect]
     Active Substance: ZOLEDRONIC ACID
     Dosage: NK MG
     Route: 065
  5. FOLSAURE [Concomitant]
     Active Substance: FOLIC ACID
     Dosage: 5 MILLIGRAM DAILY; 1-0-0-0
     Route: 048
  6. ABSTRAL [Concomitant]
     Active Substance: FENTANYL CITRATE
     Dosage: 0.2 MG, IF NECESSARY
     Route: 048
  7. LORAZEPAM. [Concomitant]
     Active Substance: LORAZEPAM
     Dosage: 1 MG, IF NECESSARY
  8. PANTOPRAZOL [Concomitant]
     Active Substance: PANTOPRAZOLE SODIUM
     Dosage: 40 MILLIGRAM DAILY;  1-0-0-0
     Route: 048
  9. OXYCODON [Concomitant]
     Active Substance: OXYCODONE
     Dosage: 20 MILLIGRAM DAILY;  1-0-0-1
     Route: 048
  10. LAXOBERAL [Concomitant]
     Active Substance: SODIUM PICOSULFATE
     Dosage: 10 GTT DAILY; NK MG, 10-0-0-0, DROPS
     Route: 048

REACTIONS (4)
  - Anaemia [Unknown]
  - Inflammation [Unknown]
  - Electrolyte imbalance [Unknown]
  - Pyrexia [Unknown]
